FAERS Safety Report 8017155-2 (Version None)
Quarter: 2012Q1

REPORT INFORMATION
  Report Type: 
  Country: None (occurrence: None)
  Receive Date: 20120102
  Receipt Date: 20111219
  Transmission Date: 20120608
  Serious: Yes (Death)
  Sender: FDA-Public Use
  Company Number: US-PFIZER INC-2011311784

PATIENT
  Age: 55 Year
  Sex: Female

DRUGS (5)
  1. FLUOXETINE [Suspect]
  2. QUETIAPINE [Suspect]
  3. ACETAMINOPHEN AND HYDROCODONE BITARTRATE [Suspect]
  4. HYDROCODONE [Suspect]
  5. MORPHINE SULFATE [Suspect]
     Route: 048

REACTIONS (3)
  - COMPLETED SUICIDE [None]
  - CARDIAC ARREST [None]
  - RESPIRATORY ARREST [None]
